FAERS Safety Report 4632744-0 (Version None)
Quarter: 2005Q2

REPORT INFORMATION
  Report Type: 
  Country: None (occurrence: None)
  Receive Date: 20050408
  Receipt Date: 20050408
  Transmission Date: 20051028
  Serious: Yes (Life-Threatening, Hospitalization, Disabling)
  Sender: FDA-Public Use
  Company Number: None

PATIENT
  Age: 83 Year
  Sex: Female
  Weight: 70.3075 kg

DRUGS (8)
  1. ZOCOR [Suspect]
     Indication: HYPERCHOLESTEROLAEMIA
     Dosage: 40MG  QDAY  ORAL
     Route: 048
     Dates: start: 20041205, end: 20041226
  2. PACEMAKER [Concomitant]
  3. METOPROLOL TARTRATE [Concomitant]
  4. SOTALOL HCL [Concomitant]
  5. VITAMIN C [Concomitant]
  6. DIGOXIN [Concomitant]
  7. IRON SULFATETHIAMIN COMPOUND TAB [Concomitant]
  8. PREVACID [Concomitant]

REACTIONS (7)
  - ANURIA [None]
  - ASTHENIA [None]
  - HAEMODIALYSIS [None]
  - HEPATOCELLULAR DAMAGE [None]
  - MYALGIA [None]
  - RENAL FAILURE ACUTE [None]
  - RHABDOMYOLYSIS [None]
